FAERS Safety Report 4594116-7 (Version None)
Quarter: 2005Q1

REPORT INFORMATION
  Report Type: 
  Country: None (occurrence: None)
  Receive Date: 20050301
  Receipt Date: 20050218
  Transmission Date: 20050727
  Serious: Yes (Hospitalization)
  Sender: FDA-Public Use
  Company Number: JP-MERCK-0502USA02754

PATIENT
  Age: 77 Year
  Sex: Female

DRUGS (8)
  1. SINGULAIR [Suspect]
     Indication: ASTHMA
     Route: 048
     Dates: end: 20050207
  2. DOMPERIDONE [Concomitant]
     Indication: NAUSEA
     Route: 048
     Dates: end: 20050207
  3. SUCRALFATE [Concomitant]
     Route: 048
     Dates: end: 20050207
  4. ACINON [Concomitant]
     Route: 048
     Dates: end: 20050207
  5. ASTHMOLYSIN [Concomitant]
     Route: 048
     Dates: end: 20050207
  6. TIARAMIDE HYDROCHLORIDE [Concomitant]
     Route: 048
     Dates: end: 20050207
  7. MUCOSTA [Concomitant]
     Route: 048
     Dates: end: 20050207
  8. [THERAPY UNSPECIFIED] [Concomitant]
     Route: 065

REACTIONS (1)
  - ALLERGIC GRANULOMATOUS ANGIITIS [None]
